FAERS Safety Report 5735486-3 (Version None)
Quarter: 2008Q2

REPORT INFORMATION
  Report Type: 
  Country: None (occurrence: None)
  Receive Date: 20080512
  Receipt Date: 20080430
  Transmission Date: 20081010
  Serious: Yes (Other)
  Sender: FDA-Public Use
  Company Number: GB-PFIZER INC-2008038924

PATIENT
  Sex: Female

DRUGS (7)
  1. CHANTIX [Suspect]
     Route: 048
     Dates: start: 20080327, end: 20080420
  2. GLICLAZIDE [Concomitant]
     Route: 048
  3. PERINDOPRIL ERBUMINE [Concomitant]
     Route: 048
  4. DIPYRIDAMOLE [Concomitant]
     Route: 048
  5. ATORVASTATIN [Concomitant]
     Route: 048
  6. ACETYLSALICYLIC ACID SRT [Concomitant]
     Route: 048
  7. LEVOTHYROXINE SODIUM [Concomitant]
     Route: 048

REACTIONS (2)
  - SUICIDAL IDEATION [None]
  - TEARFULNESS [None]
